FAERS Safety Report 6220390-7 (Version None)
Quarter: 2009Q2

REPORT INFORMATION
  Report Type: 
  Country: None (occurrence: None)
  Receive Date: 20090610
  Receipt Date: 20090604
  Transmission Date: 20091009
  Serious: Yes (Disabling)
  Sender: FDA-Public Use
  Company Number: JP-BRISTOL-MYERS SQUIBB COMPANY-14488852

PATIENT
  Age: 46 Year
  Sex: Male

DRUGS (5)
  1. ERBITUX [Suspect]
     Indication: RECTAL CANCER
     Dosage: IIND INF: 26NOV08(500MG/BODY) FOR 1HR IIIRD : 07JAN09(500MG/BODY) FOR 1HR IVTH:25FEB09:400MG
     Route: 042
     Dates: start: 20081119, end: 20081119
  2. IRINOTECAN HCL [Concomitant]
     Indication: COLORECTAL CANCER RECURRENT
     Route: 042
     Dates: start: 20081119
  3. FAMOTIDINE [Concomitant]
     Indication: PREMEDICATION
     Route: 042
     Dates: start: 20081119
  4. POLARAMINE [Concomitant]
     Indication: PREMEDICATION
     Route: 042
     Dates: start: 20081119
  5. DECADRON [Concomitant]
     Indication: PREMEDICATION
     Route: 042
     Dates: start: 20081119

REACTIONS (3)
  - ACNE [None]
  - RASH [None]
  - VISION BLURRED [None]
